FAERS Safety Report 8112471-8 (Version None)
Quarter: 2012Q1

REPORT INFORMATION
  Report Type: 
  Country: None (occurrence: None)
  Receive Date: 20120131
  Receipt Date: 20120112
  Transmission Date: 20120608
  Serious: Yes (Hospitalization, Other)
  Sender: FDA-Public Use
  Company Number: CIP11000537

PATIENT
  Age: 76 Year
  Sex: Female

DRUGS (33)
  1. ALBUTEROL [Concomitant]
  2. ALLEGRA      /01314201/ (FEXOFENADINE) [Concomitant]
  3. FLONASE [Concomitant]
  4. MIALCALCIN [Suspect]
  5. ACTONEL [Suspect]
     Indication: OSTEOPOROSIS
     Dosage: 10 MG TWICE DAILY, ORAL
     Route: 048
  6. PREMPHASE (PREMARIN;CYCRIN 14/14) [Concomitant]
  7. ZANTAC [Concomitant]
  8. SINGULAIR [Concomitant]
  9. NIFEDIPINE [Concomitant]
  10. CALCIUM CARBONATE [Concomitant]
  11. ACTONEL [Suspect]
     Indication: OSTEOPOROSIS
     Dosage: 5 MG DAILY, ORAL
     Route: 048
     Dates: start: 20000901, end: 20010219
  12. POTASSIUM CHLORIDE [Concomitant]
  13. PREDNISONE TAB [Concomitant]
  14. LOPRESSOR HCT (HYDROCHLOROTHIAZIDE, METOPROLOL TARTRATE) [Concomitant]
  15. FOSAMAX [Suspect]
     Indication: OSTEOPOROSIS
     Dosage: 10 MG DAILY, ORAL
     Route: 048
     Dates: start: 19960304, end: 20000901
  16. ACTONEL [Suspect]
     Indication: OSTEOPOROSIS
     Dosage: 35 MG WEEKLY, ORAL
     Route: 048
     Dates: start: 20020930, end: 20051219
  17. BUSPIRONE HCL [Concomitant]
  18. METHOCARBAMOL [Concomitant]
  19. QUININE SULFATE [Concomitant]
  20. ADVAIR HFA [Concomitant]
  21. CHEMOTHERAPEUTICS NOS) [Concomitant]
  22. MYCELEX [Concomitant]
  23. NEURONTIN [Concomitant]
  24. TYLENOL WITH CODEIN #4 (CODEINE PHOSPHATE, PARACETAMOL) [Concomitant]
  25. ACYCLOVIR     /00587301/ (ACICLOVIR) [Concomitant]
  26. CELEBREX [Concomitant]
  27. ATROVENT [Concomitant]
  28. THEOPHYLLINE [Concomitant]
  29. LEVAQUIN [Concomitant]
  30. AVELOX [Concomitant]
  31. FOSAMAX [Suspect]
     Indication: OSTEOPOROSIS
     Dosage: 70 MG WEEKLY, ORAL
     Route: 048
     Dates: start: 20010219, end: 20020423
  32. INDAPAMIDE [Concomitant]
  33. NITROGLYCERIN [Concomitant]

REACTIONS (20)
  - FEMUR FRACTURE [None]
  - DEVICE FAILURE [None]
  - INCORRECT DOSE ADMINISTERED [None]
  - BACTERAEMIA [None]
  - BONE DISORDER [None]
  - OSTEOMYELITIS CHRONIC [None]
  - HAEMATOMA [None]
  - FRACTURE NONUNION [None]
  - MASS [None]
  - JOINT DISLOCATION [None]
  - HIP DEFORMITY [None]
  - GROIN PAIN [None]
  - PAIN IN EXTREMITY [None]
  - CELLULITIS [None]
  - ABDOMINAL DISCOMFORT [None]
  - PROCEDURAL PAIN [None]
  - OSTEONECROSIS [None]
  - WOUND INFECTION [None]
  - STRESS FRACTURE [None]
  - ARTHRALGIA [None]
